FAERS Safety Report 10210452 (Version 1)
Quarter: 2014Q2

REPORT INFORMATION
  Report Type: Spontaneous
  Country: US (occurrence: US)
  Receive Date: 20140602
  Receipt Date: 20140602
  Transmission Date: 20141212
  Serious: Yes (Other)
  Sender: FDA-Public Use
  Company Number: US-SA-2014SA068785

PATIENT
  Age: 55 Year
  Sex: Male
  Weight: 127 kg

DRUGS (11)
  1. PLAVIX [Suspect]
     Indication: PRODUCT USED FOR UNKNOWN INDICATION
     Route: 065
     Dates: end: 200612
  2. METFORMIN [Concomitant]
  3. GLIPIZIDE [Concomitant]
  4. PRAVASTATIN [Concomitant]
  5. VENLAFAXINE [Concomitant]
  6. ATENOLOL [Concomitant]
  7. ENALAPRIL [Concomitant]
  8. NEXIUM [Concomitant]
  9. FISH OIL [Concomitant]
  10. ASPIRIN [Concomitant]
  11. VICODIN [Concomitant]

REACTIONS (1)
  - Keratomileusis [Unknown]
